FAERS Safety Report 20205536 (Version 2)
Quarter: 2021Q4

REPORT INFORMATION
  Report Type: Report from Study
  Country: AU (occurrence: AU)
  Receive Date: 20211220
  Receipt Date: 20211221
  Transmission Date: 20220303
  Serious: Yes (Life-Threatening, Hospitalization)
  Sender: FDA-Public Use
  Company Number: AU-ELI_LILLY_AND_COMPANY-AU202112006299

PATIENT
  Age: 74 Year
  Sex: Female
  Weight: 71.15 kg

DRUGS (7)
  1. SELPERCATINIB [Suspect]
     Active Substance: SELPERCATINIB
     Indication: Non-small cell lung cancer
     Dosage: 160 MG, BID
     Route: 048
     Dates: start: 20211116, end: 20211125
  2. SELPERCATINIB [Suspect]
     Active Substance: SELPERCATINIB
     Dosage: 80 MG, BID
     Route: 048
     Dates: start: 20211211, end: 20211212
  3. XARELTO [Concomitant]
     Active Substance: RIVAROXABAN
     Indication: Atrial fibrillation
     Dosage: UNK, UNKNOWN
     Dates: start: 202011
  4. TAMBOCOR [Concomitant]
     Active Substance: FLECAINIDE ACETATE
     Indication: Atrial fibrillation
     Dosage: UNK, UNKNOWN
     Dates: start: 202011
  5. GASTROSTOP [Concomitant]
     Indication: Diarrhoea
     Dosage: UNK, UNKNOWN
     Dates: start: 20211127
  6. CETIRIZINE [Concomitant]
     Active Substance: CETIRIZINE HYDROCHLORIDE
     Indication: Liver function test abnormal
     Dosage: 10 MG, DAILY
     Dates: start: 20211127
  7. PREDNISONE [Concomitant]
     Active Substance: PREDNISONE
     Indication: Liver function test abnormal
     Dosage: 15 MG, DAILY
     Dates: start: 20211207

REACTIONS (1)
  - Anaphylactic reaction [Recovering/Resolving]

NARRATIVE: CASE EVENT DATE: 20211210
